FAERS Safety Report 6604799-5 (Version None)
Quarter: 2010Q1

REPORT INFORMATION
  Report Type: 
  Country: None (occurrence: None)
  Receive Date: 20100226
  Receipt Date: 20100222
  Transmission Date: 20100710
  Serious: Yes (Hospitalization, Other)
  Sender: FDA-Public Use
  Company Number: FR-ROCHE-686702

PATIENT
  Age: 33 Year
  Sex: Male

DRUGS (13)
  1. SAQUINAVIR [Suspect]
     Indication: HIV INFECTION
     Route: 065
     Dates: start: 19981201
  2. NELFINAVIR MESYLATE [Suspect]
     Indication: HIV INFECTION
     Route: 065
     Dates: start: 19991001
  3. ZIDOVUDINE [Suspect]
     Indication: HIV INFECTION
     Route: 065
     Dates: start: 19981001
  4. ZIDOVUDINE [Suspect]
     Route: 065
     Dates: start: 20020101
  5. DIDANOSINE [Suspect]
     Indication: HIV INFECTION
     Route: 065
     Dates: start: 19981001
  6. STAVUDINE [Suspect]
     Indication: HIV INFECTION
     Route: 065
     Dates: start: 19991001
  7. LAMIVUDINE [Suspect]
     Indication: HIV INFECTION
     Route: 065
     Dates: start: 19991001
  8. LAMIVUDINE [Suspect]
     Route: 065
     Dates: start: 20020101
  9. LAMIVUDINE [Suspect]
     Route: 065
     Dates: start: 20030301
  10. EFAVIRENZ [Suspect]
     Indication: HIV INFECTION
     Route: 065
     Dates: start: 20020101
  11. TENOFOVIR [Suspect]
     Indication: HIV INFECTION
     Route: 065
     Dates: start: 20030301
  12. LOPINAVIR [Suspect]
     Indication: HIV INFECTION
     Route: 065
     Dates: start: 20030301
  13. RITONAVIR [Suspect]
     Indication: HIV INFECTION
     Route: 065
     Dates: start: 20030301

REACTIONS (3)
  - DRUG INTOLERANCE [None]
  - OSTEONECROSIS [None]
  - TREATMENT FAILURE [None]
